FAERS Safety Report 6521282-6 (Version None)
Quarter: 2009Q4

REPORT INFORMATION
  Report Type: 
  Country: None (occurrence: None)
  Receive Date: 20091230
  Receipt Date: 20091228
  Transmission Date: 20100525
  Serious: Yes (Other)
  Sender: FDA-Public Use
  Company Number: US-ASTRAZENECA-2008UW10018

PATIENT
  Age: 385 Month
  Sex: Female
  Weight: 93 kg

DRUGS (14)
  1. SEROQUEL [Suspect]
     Indication: BIPOLAR DISORDER
     Dosage: 600 MG TO 900 MG
     Route: 048
     Dates: start: 20011001, end: 20080301
  2. SEROQUEL [Suspect]
     Indication: MAJOR DEPRESSION
     Dosage: 600 MG TO 900 MG
     Route: 048
     Dates: start: 20011001, end: 20080301
  3. SEROQUEL [Suspect]
     Route: 048
  4. SEROQUEL [Suspect]
     Route: 048
  5. SEROQUEL [Suspect]
     Dosage: 3 PO QHS
     Route: 048
     Dates: start: 20061004
  6. SEROQUEL [Suspect]
     Dosage: 3 PO QHS
     Route: 048
     Dates: start: 20061004
  7. DESYREL [Concomitant]
  8. ZOLOFT [Concomitant]
  9. PROZAC [Concomitant]
     Dates: start: 20010701, end: 20080401
  10. PREDNISONE [Concomitant]
     Dates: start: 20060428
  11. ALPRAZOLAM [Concomitant]
     Indication: BIPOLAR DISORDER
     Dates: start: 20061004
  12. AVELOX [Concomitant]
     Dates: start: 20061101
  13. WELLBUTRIN [Concomitant]
     Dosage: 300 MG TAB24,AAQD
     Dates: start: 20061201
  14. TRAZODONE HCL [Concomitant]
     Dates: start: 20061206

REACTIONS (5)
  - DIABETES MELLITUS INADEQUATE CONTROL [None]
  - EAR PAIN [None]
  - GALLBLADDER DISORDER [None]
  - INFLUENZA [None]
  - NASOPHARYNGITIS [None]
